FAERS Safety Report 4317151-2 (Version None)
Quarter: 2004Q1

REPORT INFORMATION
  Report Type: 
  Country: None (occurrence: None)
  Receive Date: 20040312
  Receipt Date: 20040227
  Transmission Date: 20041129
  Serious: Yes (Other)
  Sender: FDA-Public Use
  Company Number: 2004012925

PATIENT
  Age: 70 Year
  Sex: Male

DRUGS (7)
  1. ZITHROMAX [Suspect]
     Indication: BRONCHITIS
     Dosage: 500 MG (DAILY), ORAL
     Route: 048
     Dates: start: 20040224
  2. THEOPHYLLINE [Concomitant]
  3. DEXTROMETHORPHAN HYDROBROMIDE (DEXTROMETHORPHAM HYDROBROMIDE) [Concomitant]
  4. CLOPERASTINE HYDROCHLORIDE (CLOPESRATINE HYDROCHLORIDE) [Concomitant]
  5. EPRAZINONE HYDROCHLORIDE (EPRAZINONE HYDROCHLORIDE) [Concomitant]
  6. LYSOZYME (LYSOZYME) [Concomitant]
  7. AMLODIPINE BESYLATE [Concomitant]

REACTIONS (2)
  - ANAPHYLACTIC SHOCK [None]
  - DYSSTASIA [None]
